FAERS Safety Report 8800768 (Version 2)
Quarter: 2013Q1

REPORT INFORMATION
  Report Type: Spontaneous
  Country: IT (occurrence: IT)
  Receive Date: 20120921
  Receipt Date: 20130304
  Transmission Date: 20140127
  Serious: Yes (Hospitalization)
  Sender: FDA-Public Use
  Company Number: IT-BRISTOL-MYERS SQUIBB COMPANY-16956047

PATIENT
  Age: 58 Year
  Sex: Female

DRUGS (5)
  1. ORENCIA FOR INJ [Suspect]
     Indication: RHEUMATOID ARTHRITIS
     Dosage: INTERRUPTED AND RESUMED
     Route: 042
     Dates: start: 20110301
  2. ARAVA [Suspect]
     Dosage: INTERUPTED AND RESUMED
     Route: 048
     Dates: start: 20100301
  3. PLAQUENIL [Concomitant]
     Route: 048
  4. LANSOX [Concomitant]
     Route: 048
  5. PREDNISONE [Concomitant]
     Route: 048

REACTIONS (1)
  - Demyelinating polyneuropathy [Recovering/Resolving]
